FAERS Safety Report 21649108 (Version 1)
Quarter: 2022Q4

REPORT INFORMATION
  Report Type: Spontaneous
  Country: PT (occurrence: PT)
  Receive Date: 20221128
  Receipt Date: 20221128
  Transmission Date: 20230113
  Serious: Yes (Other)
  Sender: FDA-Public Use
  Company Number: PT-INFARMED-G202211-313

PATIENT
  Age: 84 Year
  Sex: Male

DRUGS (9)
  1. AMOXICILLIN\CLAVULANIC ACID [Suspect]
     Active Substance: AMOXICILLIN\CLAVULANIC ACID
     Indication: Ear infection
     Dosage: 1 ARBITRARY UNITS, TWO TIMES A DAY
     Route: 048
     Dates: start: 20210621
  2. FLUTICASONE PROPIONATE\SALMETEROL XINAFOATE [Concomitant]
     Active Substance: FLUTICASONE PROPIONATE\SALMETEROL XINAFOATE
     Indication: Product used for unknown indication
     Dosage: 2 ARBITRARY UNITS, TWO TIMES A DAY
  3. SPIRIVA RESPIMAT [Concomitant]
     Active Substance: TIOTROPIUM BROMIDE
     Indication: Product used for unknown indication
     Dosage: 2 ARBITRARY UNITS, ONCE A DAY
  4. IBUPROFEN [Concomitant]
     Active Substance: IBUPROFEN
     Indication: Ear infection
     Dosage: 600 MILLIGRAM, TWO TIMES A DAY
     Route: 048
  5. ASPIRIN [Concomitant]
     Active Substance: ASPIRIN
     Indication: Product used for unknown indication
     Dosage: 100 MILLIGRAM, ONCE A DAY
     Route: 048
  6. OXAZEPAM [Concomitant]
     Active Substance: OXAZEPAM
     Indication: Product used for unknown indication
     Dosage: 15 MILLIGRAM, ONCE A DAY
     Route: 048
  7. ACETAMINOPHEN [Concomitant]
     Active Substance: ACETAMINOPHEN
     Indication: Ear infection
     Dosage: 1 GRAM, 3 TIMES A DAY
     Route: 048
     Dates: start: 20210621
  8. ROSUVASTATIN [Concomitant]
     Active Substance: ROSUVASTATIN
     Indication: Product used for unknown indication
     Dosage: 20 MILLIGRAM, ONCE A DAY
     Route: 048
  9. PANTOPRAZOLE SODIUM [Concomitant]
     Active Substance: PANTOPRAZOLE SODIUM
     Indication: Product used for unknown indication
     Dosage: 40 MILLIGRAM, ONCE A DAY
     Route: 048

REACTIONS (5)
  - Tongue oedema [Recovered/Resolved]
  - Pruritus genital [Recovered/Resolved]
  - Lip oedema [Recovered/Resolved]
  - Oedema genital [Recovered/Resolved]
  - Genital erythema [Recovered/Resolved]

NARRATIVE: CASE EVENT DATE: 20210629
